FAERS Safety Report 25667439 (Version 2)
Quarter: 2025Q3

REPORT INFORMATION
  Report Type: Spontaneous
  Country: JP (occurrence: JP)
  Receive Date: 20250811
  Receipt Date: 20250815
  Transmission Date: 20251020
  Serious: Yes (Life-Threatening, Hospitalization, Other)
  Sender: MERCK SHARP & DOHME LLC
  Company Number: JP-009507513-2318163

PATIENT
  Age: 74 Year
  Sex: Male

DRUGS (12)
  1. SUGAMMADEX SODIUM [Suspect]
     Active Substance: SUGAMMADEX SODIUM
     Indication: Neuromuscular blockade reversal
     Route: 042
     Dates: start: 20250529, end: 20250529
  2. ROCURONIUM BROMIDE [Suspect]
     Active Substance: ROCURONIUM BROMIDE
     Route: 042
     Dates: start: 20250529, end: 20250529
  3. FLUMAZENIL [Suspect]
     Active Substance: FLUMAZENIL
     Route: 042
     Dates: start: 20250529, end: 20250529
  4. CEFMETAZOLE SODIUM [Suspect]
     Active Substance: CEFMETAZOLE SODIUM
     Route: 041
     Dates: start: 20250529, end: 20250529
  5. ACETAMINOPHEN [Suspect]
     Active Substance: ACETAMINOPHEN
     Route: 041
     Dates: start: 20250529, end: 20250529
  6. SEVOFLURANE [Concomitant]
     Active Substance: SEVOFLURANE
     Route: 055
     Dates: start: 20250509, end: 20250529
  7. MIDAZOLAM [Concomitant]
     Active Substance: MIDAZOLAM
     Route: 042
     Dates: start: 20250529, end: 20250529
  8. FENTANYL [Concomitant]
     Active Substance: FENTANYL
     Route: 042
     Dates: start: 20250529, end: 20250529
  9. REMIFENTANIL HYDROCHLORIDE [Concomitant]
     Active Substance: REMIFENTANIL HYDROCHLORIDE
     Route: 041
     Dates: start: 20250529, end: 20250529
  10. EPHEDRINE HYDROCHLORIDE [Concomitant]
     Active Substance: EPHEDRINE HYDROCHLORIDE
     Dosage: 5 - 10 MG
     Route: 042
     Dates: start: 20250529, end: 20250529
  11. PHENYLEPHRINE HYDROCHLORIDE [Concomitant]
     Active Substance: PHENYLEPHRINE HYDROCHLORIDE
     Route: 042
     Dates: start: 20250529, end: 20250529
  12. DILTIAZEM [Concomitant]
     Active Substance: DILTIAZEM
     Route: 041
     Dates: start: 20250529, end: 20250529

REACTIONS (1)
  - Anaphylactic shock [Recovered/Resolved]

NARRATIVE: CASE EVENT DATE: 20250529
